FAERS Safety Report 12565263 (Version 1)
Quarter: 2016Q3

REPORT INFORMATION
  Report Type: Spontaneous
  Country: US (occurrence: None)
  Receive Date: 20160715
  Receipt Date: 20160715
  Transmission Date: 20161109
  Serious: Yes (Hospitalization)
  Sender: FDA-Public Use
  Company Number: GB-ALSI-201500333

PATIENT
  Age: 78 Year
  Sex: Female

DRUGS (1)
  1. MEDICAL OXYGEN [Suspect]
     Active Substance: OXYGEN
     Indication: PRODUCT USED FOR UNKNOWN INDICATION
     Dosage: 4 | LITRE(S) 4 | ONCE A MINUTE RESPIRATORY
     Route: 055
     Dates: start: 20121112

REACTIONS (2)
  - Thermal burn [None]
  - Intentional product misuse [None]
